FAERS Safety Report 10914371 (Version 1)
Quarter: 2015Q1

REPORT INFORMATION
  Report Type: Spontaneous
  Country: US (occurrence: US)
  Receive Date: 20150313
  Receipt Date: 20150313
  Transmission Date: 20150721
  Serious: Yes (Other)
  Sender: FDA-Public Use
  Company Number: US-GLAXOSMITHKLINE-US2015033136

PATIENT
  Age: 80 Year
  Sex: Female

DRUGS (3)
  1. LOSARTAN [Concomitant]
     Active Substance: LOSARTAN
  2. TOPROL XL [Concomitant]
     Active Substance: METOPROLOL SUCCINATE
  3. FLOVENT DISKUS [Suspect]
     Active Substance: FLUTICASONE PROPIONATE
     Indication: BRONCHITIS
     Dosage: 100 ?G, SINGLE
     Route: 055
     Dates: start: 20150311, end: 20150311

REACTIONS (3)
  - Somnolence [Recovered/Resolved]
  - Off label use [Unknown]
  - Loss of consciousness [Recovered/Resolved]

NARRATIVE: CASE EVENT DATE: 20150311
